FAERS Safety Report 4954173-2 (Version None)
Quarter: 2006Q1

REPORT INFORMATION
  Report Type: 
  Country: None (occurrence: None)
  Receive Date: 20060327
  Receipt Date: 20050509
  Transmission Date: 20060701
  Serious: Yes (Hospitalization, Other)
  Sender: FDA-Public Use
  Company Number: US-MERCK-0505USA01082

PATIENT
  Age: 54 Year
  Sex: Female
  Weight: 58 kg

DRUGS (7)
  1. VIOXX [Suspect]
     Indication: PAIN
     Route: 048
  2. VIOXX [Suspect]
     Route: 048
  3. VIOXX [Suspect]
     Route: 048
  4. PREMARIN [Concomitant]
     Route: 065
  5. XANAX [Concomitant]
     Route: 065
  6. GASTROINTESTINAL PREPARATIONS (UNSPECIFIED) [Concomitant]
     Route: 065
  7. AMBIEN [Concomitant]
     Route: 065

REACTIONS (8)
  - ACUTE MYOCARDIAL INFARCTION [None]
  - BLOOD PRESSURE INCREASED [None]
  - CHEST PAIN [None]
  - DIZZINESS [None]
  - ESSENTIAL HYPERTENSION [None]
  - FEMORAL ARTERY OCCLUSION [None]
  - HYPERTENSION [None]
  - PERIPHERAL VASCULAR DISORDER [None]
